FAERS Safety Report 7756227-4 (Version None)
Quarter: 2011Q3

REPORT INFORMATION
  Report Type: 
  Country: None (occurrence: None)
  Receive Date: 20110916
  Receipt Date: 20110913
  Transmission Date: 20111222
  Serious: Yes (Death, Hospitalization)
  Sender: FDA-Public Use
  Company Number: FR-B.I. PHARMACEUTICALS,INC./RIDGEFIELD-2011-FF-00241FF

PATIENT
  Sex: Male
  Weight: 75 kg

DRUGS (2)
  1. PRADAXA [Suspect]
     Dosage: 150 MG
     Route: 048
     Dates: start: 20101230, end: 20110123
  2. PRADAXA [Suspect]
     Indication: KNEE ARTHROPLASTY
     Dosage: 75 MG
     Route: 048
     Dates: start: 20101229, end: 20101229

REACTIONS (3)
  - METASTASES TO LUNG [None]
  - METASTASES TO CENTRAL NERVOUS SYSTEM [None]
  - ASTHENIA [None]
